FAERS Safety Report 20361399 (Version 1)
Quarter: 2022Q1

REPORT INFORMATION
  Report Type: Spontaneous
  Country: US (occurrence: US)
  Receive Date: 20220121
  Receipt Date: 20220121
  Transmission Date: 20220424
  Serious: No
  Sender: FDA-Public Use
  Company Number: US-SA-SAC20211102000321

PATIENT
  Age: 46 Year
  Sex: Female

DRUGS (2)
  1. DUPIXENT [Suspect]
     Active Substance: DUPILUMAB
     Indication: Dermatitis atopic
     Dosage: 300 MG
     Route: 058
     Dates: start: 202107, end: 202108
  2. DUPIXENT [Suspect]
     Active Substance: DUPILUMAB
     Dosage: 400 UNK
     Dates: start: 20210910

REACTIONS (6)
  - Unevaluable event [Unknown]
  - Urticaria [Unknown]
  - Pyrexia [Unknown]
  - Chills [Unknown]
  - Fatigue [Unknown]
  - Product use issue [Unknown]

NARRATIVE: CASE EVENT DATE: 20210831
